FAERS Safety Report 14616134 (Version 1)
Quarter: 2018Q1

REPORT INFORMATION
  Report Type: Spontaneous
  Country: FR (occurrence: FR)
  Receive Date: 20180309
  Receipt Date: 20180309
  Transmission Date: 20180509
  Serious: Yes (Other)
  Sender: FDA-Public Use
  Company Number: FR-MERCK KGAA-2043390

PATIENT
  Age: 54 Year
  Sex: Female
  Weight: 80 kg

DRUGS (1)
  1. NOVOTHYROX [Suspect]
     Active Substance: LEVOTHYROXINE SODIUM
     Indication: THYROIDECTOMY
     Route: 048
     Dates: start: 20141002

REACTIONS (6)
  - Alopecia [Not Recovered/Not Resolved]
  - Pain [Not Recovered/Not Resolved]
  - Job dissatisfaction [Recovered/Resolved]
  - Depressed mood [Not Recovered/Not Resolved]
  - Product formulation issue [Not Recovered/Not Resolved]
  - Dry skin [Not Recovered/Not Resolved]

NARRATIVE: CASE EVENT DATE: 20170101
